FAERS Safety Report 14287983 (Version 1)
Quarter: 2017Q4

REPORT INFORMATION
  Report Type: Spontaneous
  Country: US (occurrence: US)
  Receive Date: 20171214
  Receipt Date: 20171214
  Transmission Date: 20180321
  Serious: No
  Sender: FDA-Public Use
  Company Number: US-PERRIGO-17US024743

PATIENT
  Age: 86 Year
  Sex: Female
  Weight: 61.22 kg

DRUGS (1)
  1. BACITRACIN. [Suspect]
     Active Substance: BACITRACIN
     Indication: INFECTION PROPHYLAXIS
     Dosage: SMALL AMOUNT, BID
     Route: 047
     Dates: start: 20170613, end: 20170620

REACTIONS (4)
  - Off label use [Recovered/Resolved]
  - Erythema of eyelid [Recovered/Resolved]
  - Eyelid oedema [Recovered/Resolved]
  - Eyelids pruritus [Recovered/Resolved]

NARRATIVE: CASE EVENT DATE: 201706
